FAERS Safety Report 6237733-0 (Version None)
Quarter: 2009Q2

REPORT INFORMATION
  Report Type: 
  Country: None (occurrence: None)
  Receive Date: 20090618
  Receipt Date: 20090603
  Transmission Date: 20091009
  Serious: Yes (Other)
  Sender: FDA-Public Use
  Company Number: 2009SP012233

PATIENT
  Age: 60 Year
  Sex: Female

DRUGS (4)
  1. CLARITIN [Suspect]
     Dosage: PO
     Route: 048
  2. ASPIRIN [Concomitant]
  3. HIGH BLOOD PRESSURE MEDICATION [Concomitant]
  4. DIABETES MEDICATION [Concomitant]

REACTIONS (1)
  - ANGINA PECTORIS [None]
